FAERS Safety Report 9547191 (Version 3)
Quarter: 2013Q4

REPORT INFORMATION
  Report Type: Spontaneous
  Country: JP (occurrence: JP)
  Receive Date: 20130924
  Receipt Date: 20131008
  Transmission Date: 20140711
  Serious: Yes (Hospitalization, Other)
  Sender: FDA-Public Use
  Company Number: JP-CELGENEUS-087-21660-13083885

PATIENT
  Age: 78 Year
  Sex: Male
  Weight: 55 kg

DRUGS (4)
  1. ABRAXANE [Suspect]
     Indication: NON-SMALL CELL LUNG CANCER
     Dosage: 158 MILLIGRAM
     Route: 041
     Dates: start: 20130702, end: 20130702
  2. CARBOPLATIN [Suspect]
     Indication: NON-SMALL CELL LUNG CANCER
     Dosage: 455 MILLIGRAM
     Route: 041
     Dates: start: 20130702, end: 20130702
  3. AMLODIN [Concomitant]
     Indication: HYPERTENSION
     Dosage: 5 MILLIGRAM
     Route: 048
  4. DIOVAN [Concomitant]
     Indication: HYPERTENSION
     Dosage: 80 MILLIGRAM
     Route: 048

REACTIONS (2)
  - Ileus paralytic [Recovering/Resolving]
  - Colitis ischaemic [Recovering/Resolving]
